FAERS Safety Report 7398195-3 (Version None)
Quarter: 2011Q2

REPORT INFORMATION
  Report Type: 
  Country: None (occurrence: None)
  Receive Date: 20110406
  Receipt Date: 20110404
  Transmission Date: 20111010
  Serious: Yes (Hospitalization, Other)
  Sender: FDA-Public Use
  Company Number: US-ABBOTT-11P-163-0713894-00

PATIENT
  Sex: Female
  Weight: 59.02 kg

DRUGS (14)
  1. HUMIRA [Suspect]
     Indication: CROHN'S DISEASE
     Dates: start: 20091001, end: 20101001
  2. FLEXERIL [Concomitant]
     Indication: ABDOMINAL RIGIDITY
  3. ALBUTEROL [Concomitant]
     Indication: ASTHMA
  4. LEVOTHYROXINE [Concomitant]
     Indication: HYPOTHYROIDISM
  5. BENTYL [Concomitant]
     Indication: CROHN'S DISEASE
  6. ZOFRAN [Concomitant]
     Indication: NAUSEA
  7. ZYRTEC [Concomitant]
     Indication: HYPERSENSITIVITY
  8. MORPHINE SULFATE [Concomitant]
     Indication: PAIN
  9. MORPHINE SULFATE [Concomitant]
     Indication: ABDOMINAL RIGIDITY
  10. HYDROXYZYNE [Concomitant]
     Indication: HYPERSENSITIVITY
  11. NEXIUM [Concomitant]
     Indication: CROHN'S DISEASE
  12. SINGULAIR [Concomitant]
     Indication: HYPERSENSITIVITY
  13. PENTASA [Concomitant]
     Indication: CROHN'S DISEASE
  14. METOPROLOL [Concomitant]
     Indication: SINUS TACHYCARDIA

REACTIONS (14)
  - HEART RATE INCREASED [None]
  - PREALBUMIN DECREASED [None]
  - PAIN [None]
  - WOUND INFECTION STAPHYLOCOCCAL [None]
  - BLOOD CALCIUM [None]
  - OEDEMA PERIPHERAL [None]
  - BLOOD PRESSURE DECREASED [None]
  - WOUND [None]
  - MENTAL IMPAIRMENT [None]
  - WOUND SECRETION [None]
  - CHEST PAIN [None]
  - PROTEIN TOTAL DECREASED [None]
  - STAPHYLOCOCCAL INFECTION [None]
  - INTESTINAL OBSTRUCTION [None]
